FAERS Safety Report 8142408-7 (Version None)
Quarter: 2012Q1

REPORT INFORMATION
  Report Type: 
  Country: None (occurrence: None)
  Receive Date: 20120103
  Receipt Date: 20110902
  Transmission Date: 20120608
  Serious: No
  Sender: FDA-Public Use
  Company Number: AE-2011-001292

PATIENT
  Sex: Female

DRUGS (2)
  1. INCIVEK [Suspect]
     Dosage: ORAL
     Route: 048
  2. PEG INTERFERON (PEGINTERFERON ALFA-2A) [Concomitant]

REACTIONS (1)
  - RASH [None]
